FAERS Safety Report 6061065-7 (Version None)
Quarter: 2009Q1

REPORT INFORMATION
  Report Type: 
  Country: None (occurrence: None)
  Receive Date: 20090202
  Receipt Date: 20090121
  Transmission Date: 20090719
  Serious: Yes (Death, Hospitalization)
  Sender: FDA-Public Use
  Company Number: IR-SANOFI-SYNTHELABO-A01200900781

PATIENT
  Age: 43 Year
  Sex: Female

DRUGS (2)
  1. PLAVIX [Suspect]
     Indication: PERCUTANEOUS CORONARY INTERVENTION
     Dosage: 600 MG ONCE AS LOADING DOSE, FOLLOWED BY UNSPECIFIED DAILY DOSE
     Route: 048
  2. PLAVIX [Suspect]
     Indication: STENT PLACEMENT
     Dosage: 600 MG ONCE AS LOADING DOSE, FOLLOWED BY UNSPECIFIED DAILY DOSE
     Route: 048

REACTIONS (3)
  - MYOCARDIAL INFARCTION [None]
  - OVERDOSE [None]
  - THROMBOSIS IN DEVICE [None]
